FAERS Safety Report 10601761 (Version 1)
Quarter: 2014Q4

REPORT INFORMATION
  Report Type: Spontaneous
  Country: US (occurrence: US)
  Receive Date: 20141124
  Receipt Date: 20141124
  Transmission Date: 20150529
  Serious: No
  Sender: FDA-Public Use
  Company Number: US-MYLANLABS-2014S1011091

PATIENT
  Sex: Male

DRUGS (1)
  1. MACROGOL [Suspect]
     Active Substance: POLYETHYLENE GLYCOLS

REACTIONS (1)
  - Constipation [Not Recovered/Not Resolved]
